FAERS Safety Report 4361812-6 (Version None)
Quarter: 2004Q2

REPORT INFORMATION
  Report Type: 
  Country: None (occurrence: None)
  Receive Date: 20040517
  Receipt Date: 20040504
  Transmission Date: 20050107
  Serious: Yes (Other)
  Sender: FDA-Public Use
  Company Number: HQWYE764907MAY04

PATIENT
  Age: 53 Year
  Sex: Female

DRUGS (3)
  1. PREMPRO [Suspect]
     Indication: HORMONE REPLACEMENT THERAPY
     Dates: start: 19970829, end: 20010720
  2. CYCRIN [Suspect]
     Indication: HORMONE REPLACEMENT THERAPY
     Dates: start: 20010720, end: 20020326
  3. ESTRATEST [Suspect]
     Indication: OESTROGEN REPLACEMENT THERAPY
     Dates: start: 20010720, end: 20020326

REACTIONS (1)
  - BREAST CANCER [None]
